FAERS Safety Report 7644341-3 (Version None)
Quarter: 2011Q3

REPORT INFORMATION
  Report Type: 
  Country: None (occurrence: None)
  Receive Date: 20110728
  Receipt Date: 20110728
  Transmission Date: 20111222
  Serious: Yes (Other)
  Sender: FDA-Public Use
  Company Number: None

PATIENT
  Age: 52 Year
  Sex: Female

DRUGS (2)
  1. MULTIHANCE [Suspect]
     Indication: NUCLEAR MAGNETIC RESONANCE IMAGING
     Route: 042
     Dates: start: 20110216
  2. MULTIHANCE [Suspect]
     Indication: SCAN WITH CONTRAST
     Route: 042
     Dates: start: 20110216

REACTIONS (2)
  - PRURITUS [None]
  - URTICARIA [None]
